FAERS Safety Report 9922778 (Version 1)
Quarter: 2014Q1

REPORT INFORMATION
  Report Type: Spontaneous
  Country: IT (occurrence: IT)
  Receive Date: 20140225
  Receipt Date: 20140225
  Transmission Date: 20141002
  Serious: Yes (Other)
  Sender: FDA-Public Use
  Company Number: IT-TEVA-462890ISR

PATIENT
  Age: 49 Year
  Sex: Male
  Weight: 78 kg

DRUGS (1)
  1. FLUOROURACILE TEVA [Suspect]
     Indication: LUNG ADENOCARCINOMA
     Dosage: 1967 MILLIGRAM DAILY;
     Route: 042
     Dates: start: 20140206, end: 20140210

REACTIONS (1)
  - Electrocardiogram ST segment depression [Unknown]
